FAERS Safety Report 5993049-9 (Version None)
Quarter: 2008Q4

REPORT INFORMATION
  Report Type: 
  Country: None (occurrence: None)
  Receive Date: 20081210
  Receipt Date: 20081210
  Transmission Date: 20090506
  Serious: Yes (Hospitalization)
  Sender: FDA-Public Use
  Company Number: None

PATIENT
  Age: 60 Year
  Sex: Male
  Weight: 103.9 kg

DRUGS (1)
  1. ERLOTINIB [Suspect]
     Indication: LUNG CANCER METASTATIC
     Dosage: 150 MG ORAL ONCE DAILY
     Dates: start: 20080808, end: 20081105

REACTIONS (5)
  - ABDOMINAL PAIN [None]
  - CONFUSIONAL STATE [None]
  - IRRITABLE BOWEL SYNDROME [None]
  - MENTAL STATUS CHANGES [None]
  - PAIN [None]
